FAERS Safety Report 8429540-5 (Version None)
Quarter: 2012Q2

REPORT INFORMATION
  Report Type: 
  Country: None (occurrence: None)
  Receive Date: 20120612
  Receipt Date: 20120608
  Transmission Date: 20120825
  Serious: No
  Sender: FDA-Public Use
  Company Number: US-PFIZER INC-2012138800

PATIENT
  Sex: Female
  Weight: 54.4 kg

DRUGS (2)
  1. HYDROCORTISONE ACETATE [Suspect]
     Indication: ERYTHEMA
     Dosage: UNK
     Dates: start: 20100601, end: 20100601
  2. AUGMENTIN [Concomitant]
     Indication: PROPHYLAXIS
     Dosage: UNK

REACTIONS (1)
  - DRUG INEFFECTIVE [None]
